FAERS Safety Report 6447278-0 (Version None)
Quarter: 2009Q4

REPORT INFORMATION
  Report Type: 
  Country: None (occurrence: None)
  Receive Date: 20091119
  Receipt Date: 20091116
  Transmission Date: 20100525
  Serious: Yes (Death)
  Sender: FDA-Public Use
  Company Number: PHHY2009AU33720

PATIENT
  Sex: Male

DRUGS (3)
  1. CLOZARIL [Suspect]
     Indication: SCHIZOPHRENIA
     Dosage: 550 MG DAILY
     Dates: start: 20010928
  2. OMEPRAZOLE [Concomitant]
     Dosage: 20 MG NOCTE
  3. ARIPIPRAZOLE [Concomitant]
     Dosage: 15 MG MONTE

REACTIONS (1)
  - DEATH [None]
